FAERS Safety Report 7076702-8 (Version None)
Quarter: 2010Q4

REPORT INFORMATION
  Report Type: 
  Country: None (occurrence: None)
  Receive Date: 20101101
  Receipt Date: 20101019
  Transmission Date: 20110411
  Serious: No
  Sender: FDA-Public Use
  Company Number: US-PFIZER INC-2010133479

PATIENT
  Sex: Male
  Weight: 77.098 kg

DRUGS (2)
  1. LIPITOR [Suspect]
     Indication: BLOOD CHOLESTEROL INCREASED
     Dosage: 20 MG, 1X/DAY
     Route: 048
     Dates: start: 20101012
  2. VITAMIN D [Concomitant]
     Dosage: UNK

REACTIONS (1)
  - GINGIVAL DISCOLOURATION [None]
